FAERS Safety Report 6391098-2 (Version None)
Quarter: 2009Q4

REPORT INFORMATION
  Report Type: 
  Country: None (occurrence: None)
  Receive Date: 20091007
  Receipt Date: 20091005
  Transmission Date: 20100525
  Serious: No
  Sender: FDA-Public Use
  Company Number: US-ROXANE LABORATORIES, INC.-2009-RO-01030RO

PATIENT
  Sex: Female

DRUGS (1)
  1. FLUTICASONE [Suspect]

REACTIONS (1)
  - AGEUSIA [None]
